FAERS Safety Report 8272070-4 (Version None)
Quarter: 2012Q1

REPORT INFORMATION
  Report Type: 
  Country: None (occurrence: None)
  Receive Date: 20120312
  Receipt Date: 20111219
  Transmission Date: 20120608
  Serious: No
  Sender: FDA-Public Use
  Company Number: 2011SP059188

PATIENT
  Sex: Female

DRUGS (2)
  1. SAPHRIS [Suspect]
     Indication: BIPOLAR DISORDER
     Dosage: 5 MG;BID; SL, 10 MG;BID; SL
     Route: 060
     Dates: start: 20111101
  2. SAPHRIS [Suspect]
     Indication: PSYCHOTIC DISORDER
     Dosage: 5 MG;BID; SL, 10 MG;BID; SL
     Route: 060
     Dates: start: 20111101

REACTIONS (2)
  - SEDATION [None]
  - NO THERAPEUTIC RESPONSE [None]
